FAERS Safety Report 11909267 (Version 1)
Quarter: 2016Q1

REPORT INFORMATION
  Report Type: Other
  Country: GB (occurrence: GB)
  Receive Date: 20160112
  Receipt Date: 20160112
  Transmission Date: 20160526
  Serious: Yes (Other)
  Sender: FDA-Public Use
  Company Number: GB-SHIRE-GB201600191

PATIENT
  Sex: Female

DRUGS (1)
  1. ELAPRASE [Suspect]
     Active Substance: IDURSULFASE
     Indication: MUCOPOLYSACCHARIDOSIS II
     Dosage: 24 MG (4 X 6 MG VIALS), 1X/WEEK
     Route: 041
     Dates: start: 20131102

REACTIONS (3)
  - Ear infection [Unknown]
  - Lower respiratory tract infection [Unknown]
  - Pharyngitis [Unknown]
